FAERS Safety Report 7812106-5 (Version None)
Quarter: 2011Q4

REPORT INFORMATION
  Report Type: 
  Country: None (occurrence: None)
  Receive Date: 20111013
  Receipt Date: 20111003
  Transmission Date: 20120403
  Serious: Yes (Other)
  Sender: FDA-Public Use
  Company Number: PHHY2011US87947

PATIENT
  Age: 67 Year
  Sex: Female

DRUGS (5)
  1. MYCOPHENOLATE MOFETIL [Suspect]
     Dosage: 500 MG, UNK
  2. MYCOPHENOLATE MOFETIL [Suspect]
     Dosage: 2000 MG, UNK
  3. SILDENAFIL CITRATE [Concomitant]
     Indication: PULMONARY HYPERTENSION
  4. MYCOPHENOLATE MOFETIL [Suspect]
     Dosage: 1.5 G, UNK
  5. CORTICOSTEROIDS [Concomitant]

REACTIONS (14)
  - PULMONARY HYPERTENSION [None]
  - INTERSTITIAL LUNG DISEASE [None]
  - ALVEOLAR PROTEINOSIS [None]
  - PYREXIA [None]
  - OEDEMA PERIPHERAL [None]
  - COUGH [None]
  - MYOPATHY [None]
  - CLUBBING [None]
  - RENAL IMPAIRMENT [None]
  - DYSPNOEA EXERTIONAL [None]
  - RESPIRATORY DISTRESS [None]
  - BLOOD LACTATE DEHYDROGENASE INCREASED [None]
  - HYPERGLYCAEMIA [None]
  - HYPOXIA [None]
